FAERS Safety Report 5903012-1 (Version None)
Quarter: 2008Q3

REPORT INFORMATION
  Report Type: 
  Country: None (occurrence: None)
  Receive Date: 20080930
  Receipt Date: 20080917
  Transmission Date: 20090109
  Serious: Yes (Hospitalization)
  Sender: FDA-Public Use
  Company Number: JP-AMGEN-US295052

PATIENT
  Sex: Female
  Weight: 85 kg

DRUGS (11)
  1. ENBREL [Suspect]
     Indication: RHEUMATOID ARTHRITIS
     Route: 058
     Dates: start: 20060101
  2. RHEUMATREX [Suspect]
     Indication: RHEUMATOID ARTHRITIS
     Route: 048
     Dates: end: 20080710
  3. MEDROL [Concomitant]
     Indication: RHEUMATOID ARTHRITIS
     Route: 048
  4. PYDOXAL [Concomitant]
     Indication: RHEUMATOID ARTHRITIS
     Route: 048
  5. ASPARTATE CALCIUM [Concomitant]
     Indication: OSTEOPOROSIS
     Dosage: UNKNOWN
     Route: 048
  6. APLACE [Concomitant]
     Indication: RHEUMATOID ARTHRITIS
     Route: 048
  7. CYANOCOBALAMIN [Concomitant]
     Indication: SCIATICA
     Route: 048
  8. EPINASTINE HYDROCHLORIDE [Concomitant]
     Indication: DERMATITIS ALLERGIC
     Route: 048
  9. ROCALTROL [Concomitant]
     Indication: OSTEOPOROSIS
     Route: 048
  10. FOLIAMIN [Concomitant]
     Route: 048
  11. ACINON [Concomitant]
     Indication: RHEUMATOID ARTHRITIS
     Route: 048

REACTIONS (2)
  - BONE MARROW FAILURE [None]
  - HEADACHE [None]
